FAERS Safety Report 5217785-7 (Version None)
Quarter: 2007Q1

REPORT INFORMATION
  Report Type: 
  Country: None (occurrence: None)
  Receive Date: 20070124
  Receipt Date: 20070122
  Transmission Date: 20070707
  Serious: Yes (Death)
  Sender: FDA-Public Use
  Company Number: US-BRISTOL-MYERS SQUIBB COMPANY-13651880

PATIENT
  Age: 63 Year
  Sex: Male
  Weight: 85 kg

DRUGS (3)
  1. TAXOL [Suspect]
     Indication: LUNG NEOPLASM MALIGNANT
  2. PARAPLATIN [Concomitant]
  3. ZOMETA [Concomitant]

REACTIONS (1)
  - DEATH [None]
